FAERS Safety Report 10770639 (Version 1)
Quarter: 2015Q1

REPORT INFORMATION
  Report Type: Report from Study
  Country: US (occurrence: US)
  Receive Date: 20150206
  Receipt Date: 20150206
  Transmission Date: 20150721
  Serious: Yes (Hospitalization)
  Sender: FDA-Public Use
  Company Number: PHHO2012US005660

PATIENT
  Age: 7 Year
  Sex: Female
  Weight: 26.8 kg

DRUGS (3)
  1. RAD001O [Suspect]
     Active Substance: UNSPECIFIED INGREDIENT
     Indication: ASTROCYTOMA, LOW GRADE
     Dosage: 4 MG, QD
     Route: 048
     Dates: start: 20100811
  2. PLACEBO [Suspect]
     Active Substance: UNSPECIFIED INGREDIENT
     Indication: ASTROCYTOMA, LOW GRADE
     Dosage: UNK
     Route: 048
     Dates: start: 20100429
  3. RAD001O [Suspect]
     Active Substance: UNSPECIFIED INGREDIENT
     Dosage: 8 MG, QD
     Route: 048
     Dates: start: 20120502

REACTIONS (2)
  - Pulmonary pneumatocele [Recovered/Resolved]
  - Pneumonia [Recovered/Resolved]

NARRATIVE: CASE EVENT DATE: 20120407
